FAERS Safety Report 22034970 (Version 1)
Quarter: 2023Q1

REPORT INFORMATION
  Report Type: Spontaneous
  Country: US (occurrence: None)
  Receive Date: 20230222
  Receipt Date: 20230222
  Transmission Date: 20230418
  Serious: Yes (Life-Threatening)
  Sender: FDA-Public Use
  Company Number: None

PATIENT
  Age: 72 Year
  Sex: Female
  Weight: 78.4 kg

DRUGS (1)
  1. KETOROLAC [Suspect]
     Active Substance: KETOROLAC TROMETHAMINE
     Indication: Pain in extremity
     Dosage: FREQUENCY : ONCE;?
     Route: 030
     Dates: start: 20230219, end: 20230219

REACTIONS (3)
  - Malaise [None]
  - Injection site reaction [None]
  - Necrotising fasciitis [None]

NARRATIVE: CASE EVENT DATE: 20230219
